FAERS Safety Report 17857635 (Version 2)
Quarter: 2020Q2

REPORT INFORMATION
  Report Type: Spontaneous
  Country: FR (occurrence: FR)
  Receive Date: 20200604
  Receipt Date: 20200611
  Transmission Date: 20200714
  Serious: Yes (Death, Hospitalization)
  Sender: FDA-Public Use
  Company Number: FR-TEVA-2020-FR-1242063

PATIENT
  Age: 93 Year
  Sex: Male

DRUGS (9)
  1. NOREPINEPHRINE. [Suspect]
     Active Substance: NOREPINEPHRINE
     Indication: SHOCK
     Dosage: UP TO 30 MG/HOUR; CONTINUOUS INFUSION
     Route: 050
  2. FLUINDIONE [Suspect]
     Active Substance: FLUINDIONE
     Indication: HYPERTENSION
     Dosage: 5 TABLETS OF 20MG
     Route: 048
  3. COVERAM [Interacting]
     Active Substance: AMLODIPINE\PERINDOPRIL
     Indication: HYPERTENSION
     Dosage: 4 TABLETS OF 10MG
     Route: 048
  4. NOREPINEPHRINE. [Suspect]
     Active Substance: NOREPINEPHRINE
     Indication: SHOCK
     Dosage: UP TO 2 MG/HOUR; CONTINUOUS INFUSION
     Route: 050
  5. LERCANIDIPINE [Interacting]
     Active Substance: LERCANIDIPINE
     Indication: HYPERTENSION
     Dosage: 3 TABLETS OF 10MG
     Route: 048
  6. INSULIN [Suspect]
     Active Substance: INSULIN NOS
     Indication: SHOCK
     Route: 065
  7. CALCIUM CHLORIDE. [Suspect]
     Active Substance: CALCIUM CHLORIDE
     Indication: SHOCK
     Route: 065
  8. DOBUTAMINE [Suspect]
     Active Substance: DOBUTAMINE HYDROCHLORIDE
     Indication: SHOCK
     Route: 065
  9. METHYLENE BLUE. [Suspect]
     Active Substance: METHYLENE BLUE
     Indication: SHOCK
     Route: 065

REACTIONS (13)
  - Shock [Fatal]
  - Drug ineffective [Fatal]
  - Intentional overdose [Fatal]
  - Acute respiratory distress syndrome [Fatal]
  - Drug interaction [Fatal]
  - Hypothermia [Fatal]
  - Pneumonia aspiration [Fatal]
  - Multiple organ dysfunction syndrome [Fatal]
  - Hepatic failure [Fatal]
  - Cholestasis [Fatal]
  - Toxicity to various agents [Fatal]
  - Seizure [Fatal]
  - Renal failure [Fatal]
